FAERS Safety Report 8205568-5 (Version None)
Quarter: 2012Q1

REPORT INFORMATION
  Report Type: 
  Country: None (occurrence: None)
  Receive Date: 20120313
  Receipt Date: 20120302
  Transmission Date: 20120608
  Serious: Yes (Hospitalization)
  Sender: FDA-Public Use
  Company Number: US-ACTELION-A-NJ2011-54434

PATIENT

DRUGS (3)
  1. TRACLEER [Suspect]
     Indication: PULMONARY ARTERIAL HYPERTENSION
     Dosage: UNK
     Route: 048
     Dates: start: 20100302
  2. CALCIUM CHANNEL BLOCKERS [Concomitant]
  3. VIAGRA [Concomitant]

REACTIONS (4)
  - DYSPNOEA [None]
  - PANIC ATTACK [None]
  - PULMONARY FIBROSIS [None]
  - ASTHENIA [None]
